FAERS Safety Report 9436663 (Version 1)
Quarter: 2013Q3

REPORT INFORMATION
  Report Type: Spontaneous
  Country: US (occurrence: US)
  Receive Date: 20130802
  Receipt Date: 20130802
  Transmission Date: 20140515
  Serious: No
  Sender: FDA-Public Use
  Company Number: US-BAYER-2013-092816

PATIENT
  Age: 47 Year
  Sex: Female

DRUGS (3)
  1. BETASERON [Suspect]
     Dosage: 0.25 MG, QOD
     Route: 058
  2. ADVIL [Concomitant]
     Dosage: 200 MG, UNK
  3. DESOGESTREL W/ETHINYLESTRADIOL [Concomitant]
     Dosage: 28 DAY

REACTIONS (2)
  - Injection site erythema [Unknown]
  - Injection site induration [Unknown]
